FAERS Safety Report 11702275 (Version 2)
Quarter: 2016Q3

REPORT INFORMATION
  Report Type: Spontaneous
  Country: US (occurrence: US)
  Receive Date: 20151105
  Receipt Date: 20160911
  Transmission Date: 20161109
  Serious: No
  Sender: FDA-Public Use
  Company Number: US-LUNDBECK-DKLU2004815

PATIENT
  Age: 7 Month
  Sex: Male

DRUGS (2)
  1. SABRIL [Suspect]
     Active Substance: VIGABATRIN
     Indication: CEREBRAL INFARCTION
  2. SABRIL [Suspect]
     Active Substance: VIGABATRIN
     Indication: MIGRAINE WITH AURA
     Route: 048
     Dates: start: 20150907

REACTIONS (2)
  - Eczema [Unknown]
  - Insomnia [Unknown]

NARRATIVE: CASE EVENT DATE: 20150828
